FAERS Safety Report 4527149-7 (Version None)
Quarter: 2004Q4

REPORT INFORMATION
  Report Type: 
  Country: None (occurrence: None)
  Receive Date: 20041126
  Receipt Date: 20040817
  Transmission Date: 20050328
  Serious: Yes (Hospitalization)
  Sender: FDA-Public Use
  Company Number: 2004229154US

PATIENT

DRUGS (1)
  1. ZYVOX [Suspect]
     Indication: INFECTION

REACTIONS (1)
  - PYREXIA [None]
